FAERS Safety Report 15898706 (Version 1)
Quarter: 2019Q1

REPORT INFORMATION
  Report Type: Report from Study
  Country: None (occurrence: US)
  Receive Date: 20190201
  Receipt Date: 20190201
  Transmission Date: 20190417
  Serious: Yes (Other)
  Sender: FDA-Public Use
  Company Number: US-ABBVIE-19K-163-2642809-00

PATIENT
  Sex: Male

DRUGS (2)
  1. HUMIRA [Suspect]
     Active Substance: ADALIMUMAB
     Indication: RHEUMATOID ARTHRITIS
     Route: 058
     Dates: end: 201809
  2. HUMIRA [Suspect]
     Active Substance: ADALIMUMAB
     Route: 058
     Dates: start: 201901

REACTIONS (4)
  - Rheumatoid arthritis [Recovering/Resolving]
  - Medical device site infection [Recovering/Resolving]
  - Mobility decreased [Recovering/Resolving]
  - Chronic inflammatory demyelinating polyradiculoneuropathy [Not Recovered/Not Resolved]
